FAERS Safety Report 14690514 (Version 1)
Quarter: 2018Q1

REPORT INFORMATION
  Report Type: Spontaneous
  Country: FR (occurrence: FR)
  Receive Date: 20180328
  Receipt Date: 20180328
  Transmission Date: 20180509
  Serious: Yes (Death, Other)
  Sender: FDA-Public Use
  Company Number: FR-INDIVIOR LIMITED-INDV-109787-2018

PATIENT
  Age: 32 Year
  Sex: Female

DRUGS (3)
  1. BUPRENORPHINE. [Suspect]
     Active Substance: BUPRENORPHINE
     Indication: DRUG USE DISORDER
     Dosage: UNKNOWN
     Route: 042
     Dates: start: 201803, end: 20180303
  2. SKENAN [Suspect]
     Active Substance: MORPHINE SULFATE
     Indication: DRUG USE DISORDER
     Dosage: UNK
     Route: 042
     Dates: start: 20180303, end: 20180303
  3. VALIUM [Suspect]
     Active Substance: DIAZEPAM
     Indication: DRUG USE DISORDER
     Dosage: UNK
     Route: 048

REACTIONS (5)
  - Intentional product use issue [Recovered/Resolved]
  - Toxicity to various agents [Fatal]
  - Overdose [Fatal]
  - Coma [Fatal]
  - Cardiac arrest [Fatal]

NARRATIVE: CASE EVENT DATE: 201803
